FAERS Safety Report 9431055 (Version 1)
Quarter: 2013Q3

REPORT INFORMATION
  Report Type: Spontaneous
  Country: CH (occurrence: CH)
  Receive Date: 20130730
  Receipt Date: 20130730
  Transmission Date: 20140515
  Serious: Yes (Other)
  Sender: FDA-Public Use
  Company Number: CH-PFIZER INC-2013222301

PATIENT
  Age: 45 Year
  Sex: Female

DRUGS (3)
  1. XANAX [Suspect]
     Dosage: 0.25 MG, AS NEEDED
     Route: 048
  2. XANAX [Suspect]
     Dosage: 5 MG, SINGLE
     Route: 048
     Dates: start: 20130617, end: 20130617
  3. CIPRALEX [Suspect]
     Indication: DEPRESSION
     Dosage: 20 MG, ONCE DAILY
     Route: 048

REACTIONS (1)
  - Suicide attempt [Recovered/Resolved]
